FAERS Safety Report 22660014 (Version 1)
Quarter: 2023Q2

REPORT INFORMATION
  Report Type: Spontaneous
  Country: US (occurrence: None)
  Receive Date: 20230630
  Receipt Date: 20230630
  Transmission Date: 20230721
  Serious: Yes (Other)
  Sender: FDA-Public Use
  Company Number: None

PATIENT
  Age: 60 Year
  Sex: Female
  Weight: 55.34 kg

DRUGS (2)
  1. ARMODAFINIL [Suspect]
     Active Substance: ARMODAFINIL
     Indication: Drug therapy
     Dosage: 100 MG DAILY ORALLY?
     Route: 048
     Dates: start: 20220507, end: 20220630
  2. MODAFINIL [Suspect]
     Active Substance: MODAFINIL
     Indication: Drug therapy
     Dosage: 100 MG DAILY ORALLY
     Route: 048
     Dates: start: 20220827, end: 20220924

REACTIONS (3)
  - Nausea [None]
  - Vomiting [None]
  - Tachycardia [None]

NARRATIVE: CASE EVENT DATE: 20220924
